FAERS Safety Report 5503591-2 (Version None)
Quarter: 2007Q4

REPORT INFORMATION
  Report Type: 
  Country: None (occurrence: None)
  Receive Date: 20071029
  Receipt Date: 20071015
  Transmission Date: 20080405
  Serious: Yes (Death, Hospitalization)
  Sender: FDA-Public Use
  Company Number: 2007P1000106

PATIENT
  Age: 59 Year
  Sex: Male

DRUGS (3)
  1. BUSULFAN (BUSULFAN) [Suspect]
     Indication: STEM CELL TRANSPLANT
     Dosage: 46 MG; QID; IV
     Route: 042
     Dates: start: 20070115, end: 20070118
  2. CYCLOPHOSPHAMIDE [Concomitant]
  3. HEPARIN [Concomitant]

REACTIONS (23)
  - AZOTAEMIA [None]
  - CAPILLARY LEAK SYNDROME [None]
  - CARDIAC ARREST [None]
  - CARDIAC FAILURE [None]
  - DISSEMINATED INTRAVASCULAR COAGULATION [None]
  - DRUG HYPERSENSITIVITY [None]
  - DRUG TOXICITY [None]
  - GASTROENTERITIS STAPHYLOCOCCAL [None]
  - GASTROINTESTINAL HAEMORRHAGE [None]
  - GLOSSOPTOSIS [None]
  - HAEMORRHOIDS [None]
  - LIVER DISORDER [None]
  - MULTI-ORGAN FAILURE [None]
  - NO THERAPEUTIC RESPONSE [None]
  - OBSTRUCTIVE AIRWAYS DISORDER [None]
  - ORAL DISORDER [None]
  - PULMONARY CONGESTION [None]
  - PULMONARY EMBOLISM [None]
  - PULMONARY OEDEMA [None]
  - RENAL FAILURE [None]
  - STAPHYLOCOCCAL SEPSIS [None]
  - STOMATITIS [None]
  - TRANSFUSION REACTION [None]
